FAERS Safety Report 6249116-8 (Version None)
Quarter: 2009Q2

REPORT INFORMATION
  Report Type: 
  Country: None (occurrence: None)
  Receive Date: 20090624
  Receipt Date: 20090616
  Transmission Date: 20091009
  Serious: Yes (Hospitalization)
  Sender: FDA-Public Use
  Company Number: TPG2009A00622

PATIENT
  Age: 59 Year
  Sex: Male

DRUGS (4)
  1. ACTOS [Suspect]
     Indication: TYPE 2 DIABETES MELLITUS
     Dosage: 30 MG, PER ORAL
     Route: 048
     Dates: start: 20070728
  2. METFORMIN HCL [Concomitant]
  3. JANUVIA (ORAL ANTIDIABETICS) [Concomitant]
  4. ARCOXIA [Concomitant]

REACTIONS (2)
  - POST PROCEDURAL HAEMORRHAGE [None]
  - TRANSITIONAL CELL CARCINOMA [None]
